FAERS Safety Report 20264623 (Version 3)
Quarter: 2022Q2

REPORT INFORMATION
  Report Type: Spontaneous
  Country: US (occurrence: US)
  Receive Date: 20211231
  Receipt Date: 20220616
  Transmission Date: 20220720
  Serious: Yes (Other)
  Sender: FDA-Public Use
  Company Number: US-PFIZER INC-202101312194

PATIENT
  Age: 69 Year
  Sex: Female

DRUGS (1)
  1. XELJANZ XR [Suspect]
     Active Substance: TOFACITINIB CITRATE
     Indication: Psoriasis
     Dosage: 11 MG, 1X/DAY

REACTIONS (6)
  - Myocardial infarction [Unknown]
  - Drug effective for unapproved indication [Unknown]
  - Fluid imbalance [Unknown]
  - Joint swelling [Unknown]
  - Peripheral swelling [Unknown]
  - Nasopharyngitis [Unknown]
